FAERS Safety Report 4836374-7 (Version None)
Quarter: 2005Q4

REPORT INFORMATION
  Report Type: 
  Country: None (occurrence: None)
  Receive Date: 20051123
  Receipt Date: 20021119
  Transmission Date: 20060501
  Serious: Yes (Disabling)
  Sender: FDA-Public Use
  Company Number: NO-ROCHE-326146

PATIENT
  Age: 31 Year
  Sex: Female

DRUGS (1)
  1. ROACCUTANE [Suspect]
     Indication: ACNE CONGLOBATA
     Route: 048
     Dates: start: 20020115, end: 20020620

REACTIONS (5)
  - CEREBROVASCULAR DISORDER [None]
  - DRY EYE [None]
  - DRY MOUTH [None]
  - MUSCULOSKELETAL PAIN [None]
  - MUSCULOSKELETAL STIFFNESS [None]
